FAERS Safety Report 5341665-X (Version None)
Quarter: 2007Q2

REPORT INFORMATION
  Report Type: 
  Country: None (occurrence: None)
  Receive Date: 20070530
  Receipt Date: 20070516
  Transmission Date: 20071010
  Serious: Yes (Hospitalization, Other)
  Sender: FDA-Public Use
  Company Number: 100#08#2007-01730

PATIENT
  Age: 30 Year
  Sex: Male

DRUGS (5)
  1. CARBAMAZEPINE [Suspect]
     Indication: DRUG USE FOR UNKNOWN INDICATION
     Dosage: 200 MG (THREE TIMES A DAY)
  2. THIORIDAZINE (THIORIDAZINE) (THIORIDAZINE) [Suspect]
     Indication: DRUG USE FOR UNKNOWN INDICATION
     Dosage: 75 MG (AT BEDTIME)
  3. ARM-A-CHAR (CHARCOAL, ACTIVATED) (ACTIVATED CHARCOAL) [Suspect]
     Indication: DRUG THERAPY
     Dosage: 30 G - 60 G EVERY FOUR HOURS, NASOGASTRIC TUBE
  4. IPECAC (CEPHAELIS SPP. SYRUP) (SYRUP) (IPECAC) [Concomitant]
  5. NALOXONE (NALOXONE) (NALOXONE) [Concomitant]

REACTIONS (3)
  - ILEUS [None]
  - INTESTINAL OBSTRUCTION [None]
  - PNEUMONIA ASPIRATION [None]
